FAERS Safety Report 13537788 (Version 1)
Quarter: 2017Q2

REPORT INFORMATION
  Report Type: Spontaneous
  Country: DE (occurrence: DE)
  Receive Date: 20170511
  Receipt Date: 20170511
  Transmission Date: 20170830
  Serious: Yes (Other)
  Sender: FDA-Public Use
  Company Number: DE-BAUSCH-BL-2017-013494

PATIENT
  Age: 18 Month
  Sex: Male

DRUGS (1)
  1. FLOXAL AUGENTROPFEN [Suspect]
     Active Substance: OFLOXACIN
     Indication: PRODUCT USED FOR UNKNOWN INDICATION
     Route: 065

REACTIONS (5)
  - Urticaria [Unknown]
  - Local swelling [Unknown]
  - Hypersensitivity [Unknown]
  - Eyelid oedema [Unknown]
  - Infection [Unknown]
